FAERS Safety Report 8541964-4 (Version None)
Quarter: 2012Q3

REPORT INFORMATION
  Report Type: 
  Country: None (occurrence: None)
  Receive Date: 20120726
  Receipt Date: 20110923
  Transmission Date: 20120928
  Serious: No
  Sender: FDA-Public Use
  Company Number: US-ASTRAZENECA-2011SE58891

PATIENT
  Age: 95 Year
  Sex: Female

DRUGS (1)
  1. SEROQUEL [Suspect]
     Indication: AGITATION
     Route: 048

REACTIONS (3)
  - CIRCUMSTANCE OR INFORMATION CAPABLE OF LEADING TO MEDICATION ERROR [None]
  - DYSPHAGIA [None]
  - OFF LABEL USE [None]
